FAERS Safety Report 14702120 (Version 2)
Quarter: 2018Q2

REPORT INFORMATION
  Report Type: Spontaneous
  Country: US (occurrence: US)
  Receive Date: 20180401
  Receipt Date: 20180419
  Transmission Date: 20180711
  Serious: No
  Sender: FDA-Public Use
  Company Number: US-JNJFOC-20180322555

PATIENT
  Sex: Female
  Weight: 36.1 kg

DRUGS (7)
  1. REMICADE [Suspect]
     Active Substance: INFLIXIMAB
     Indication: CROHN^S DISEASE
     Route: 042
  2. CARAFATE [Concomitant]
     Active Substance: SUCRALFATE
     Route: 065
     Dates: start: 20180319
  3. TYLENOL [Concomitant]
     Active Substance: ACETAMINOPHEN
     Indication: PREMEDICATION
     Route: 048
     Dates: start: 20180221
  4. RANITIDINE. [Concomitant]
     Active Substance: RANITIDINE
     Route: 065
     Dates: start: 20180214
  5. BENADRYL [Concomitant]
     Active Substance: DIPHENHYDRAMINE HYDROCHLORIDE
     Indication: PREMEDICATION
     Route: 048
     Dates: start: 20180221
  6. METHOTREXATE. [Concomitant]
     Active Substance: METHOTREXATE
     Indication: CROHN^S DISEASE
     Route: 065
     Dates: start: 20180308
  7. FOLIC ACID. [Concomitant]
     Active Substance: FOLIC ACID
     Route: 065
     Dates: start: 20171220

REACTIONS (7)
  - Dyspnoea [Recovered/Resolved]
  - Peripheral swelling [Unknown]
  - Infusion related reaction [Recovered/Resolved]
  - Drug specific antibody [Unknown]
  - Tachycardia [Recovered/Resolved]
  - Face oedema [Recovered/Resolved]
  - Hyperhidrosis [Recovered/Resolved]
